FAERS Safety Report 10572587 (Version 1)
Quarter: 2014Q4

REPORT INFORMATION
  Report Type: Spontaneous
  Country: US (occurrence: None)
  Receive Date: 20141107
  Receipt Date: 20141107
  Transmission Date: 20150529
  Serious: Yes (Disabling)
  Sender: FDA-Public Use
  Company Number: None

PATIENT
  Age: 49 Year
  Sex: Male
  Weight: 102.3 kg

DRUGS (1)
  1. CIPROFLOXACIN. [Suspect]
     Active Substance: CIPROFLOXACIN
     Indication: DIVERTICULITIS
     Route: 048
     Dates: start: 20140926, end: 20140930

REACTIONS (8)
  - Gait disturbance [None]
  - Pain in extremity [None]
  - Myalgia [None]
  - Tendon pain [None]
  - Abasia [None]
  - Arthralgia [None]
  - Weight bearing difficulty [None]
  - Impaired work ability [None]

NARRATIVE: CASE EVENT DATE: 20140926
